FAERS Safety Report 23223560 (Version 3)
Quarter: 2024Q1

REPORT INFORMATION
  Report Type: Spontaneous
  Country: JP (occurrence: JP)
  Receive Date: 20231124
  Receipt Date: 20240306
  Transmission Date: 20240409
  Serious: Yes (Hospitalization, Other)
  Sender: FDA-Public Use
  Company Number: JP-MSD-M2023-49733

PATIENT
  Age: 53 Year
  Sex: Male
  Weight: 57 kg

DRUGS (11)
  1. KEYTRUDA [Suspect]
     Active Substance: PEMBROLIZUMAB
     Indication: Lung squamous cell carcinoma stage IV
     Dosage: 200 MILLIGRAM, Q3W
     Route: 041
     Dates: start: 20220412, end: 20220927
  2. KEYTRUDA [Suspect]
     Active Substance: PEMBROLIZUMAB
     Dosage: 200 MILLIGRAM, Q3W
     Route: 041
     Dates: start: 2023, end: 20230418
  3. KEYTRUDA [Suspect]
     Active Substance: PEMBROLIZUMAB
     Dosage: 200 MILLIGRAM, Q3W
     Route: 041
     Dates: start: 2023, end: 20230912
  4. PACLITAXEL [Concomitant]
     Active Substance: PACLITAXEL
     Indication: Lung squamous cell carcinoma stage IV
     Dosage: 320 MILLIGRAM, Q3W
     Route: 041
     Dates: start: 20220412, end: 20220628
  5. CARBOPLATIN [Concomitant]
     Active Substance: CARBOPLATIN
     Indication: Lung squamous cell carcinoma stage IV
     Dosage: 770 MILLIGRAM, Q3W
     Route: 041
     Dates: start: 20220412, end: 20220628
  6. LEVETIRACETAM [Concomitant]
     Active Substance: LEVETIRACETAM
     Indication: Seizure
     Dosage: 500 MILLIGRAM, BID
     Route: 048
     Dates: start: 20220308
  7. TELMISARTAN [Concomitant]
     Active Substance: TELMISARTAN
     Indication: Hypertension
     Dosage: 20 MILLIGRAM, QD
     Route: 048
     Dates: start: 2021
  8. MIROGABALIN BESYLATE [Concomitant]
     Active Substance: MIROGABALIN BESYLATE
     Indication: Post herpetic neuralgia
     Dosage: 2.5 MILLIGRAM, QD
     Route: 048
     Dates: start: 202202
  9. OLOPATADINE [OLOPATADINE HYDROCHLORIDE] [Concomitant]
     Indication: Folliculitis
     Dosage: 2.5 MILLIGRAM, BID
     Route: 048
     Dates: start: 202108
  10. FAMOTIDINE [Concomitant]
     Active Substance: FAMOTIDINE
     Indication: Chronic gastritis
     Dosage: 20 MILLIGRAM, BID
     Route: 048
     Dates: start: 2021
  11. ATOVAQUONE [Concomitant]
     Active Substance: ATOVAQUONE
     Indication: Prophylaxis
     Dosage: 750 MILLIGRAM, QD
     Route: 048
     Dates: start: 2021

REACTIONS (4)
  - Pulmonary toxicity [Recovered/Resolved]
  - Sialoadenitis [Recovered/Resolved]
  - Dacryoadenitis acquired [Recovered/Resolved]
  - Hypopituitarism [Recovering/Resolving]

NARRATIVE: CASE EVENT DATE: 20220927
